FAERS Safety Report 19969905 (Version 2)
Quarter: 2021Q4

REPORT INFORMATION
  Report Type: Spontaneous
  Country: FR (occurrence: FR)
  Receive Date: 20211019
  Receipt Date: 20211029
  Transmission Date: 20220303
  Serious: Yes (Other)
  Sender: FDA-Public Use
  Company Number: FR-002147023-NVSC2021FR223746

PATIENT
  Age: 66 Year
  Sex: Male

DRUGS (9)
  1. METFORMIN [Suspect]
     Active Substance: METFORMIN HYDROCHLORIDE
     Indication: Product used for unknown indication
     Route: 065
     Dates: start: 2014, end: 2020
  2. METHOTREXATE [Concomitant]
     Active Substance: METHOTREXATE
     Indication: Psoriatic arthropathy
     Dosage: FOR FIVE YEARS
     Route: 048
     Dates: start: 2016
  3. METHOTREXATE [Concomitant]
     Active Substance: METHOTREXATE
     Dosage: EVERY WEDNESDAY USING A PEN SYRINGE
     Dates: start: 2016, end: 2020
  4. ATORVASTATIN [Concomitant]
     Active Substance: ATORVASTATIN
     Indication: Product used for unknown indication
     Dates: start: 2014
  5. ASPIRIN [Concomitant]
     Active Substance: ASPIRIN
     Indication: Product used for unknown indication
     Dates: start: 2014
  6. LOSARTAN [Concomitant]
     Active Substance: LOSARTAN
     Indication: Product used for unknown indication
     Dates: start: 2014
  7. HYDROCHLOROTHIAZIDE [Concomitant]
     Active Substance: HYDROCHLOROTHIAZIDE
     Indication: Product used for unknown indication
     Dates: start: 2014
  8. FOLIC ACID [Concomitant]
     Active Substance: FOLIC ACID
     Indication: Supplementation therapy
     Dosage: TAKEN THREE DAYS AFTER EACH INJECTION
  9. CALCIPOTRIENE/BETAMETHASONE [Concomitant]
     Indication: Psoriatic arthropathy
     Dates: start: 2019

REACTIONS (1)
  - Metabolic acidosis [Recovered/Resolved]

NARRATIVE: CASE EVENT DATE: 20200101
